FAERS Safety Report 20882587 (Version 1)
Quarter: 2022Q2

REPORT INFORMATION
  Report Type: Report from Study
  Country: BR (occurrence: BR)
  Receive Date: 20220527
  Receipt Date: 20220527
  Transmission Date: 20220721
  Serious: Yes (Other)
  Sender: FDA-Public Use
  Company Number: BR-ABBVIE-21K-020-4165439-00

PATIENT
  Sex: Female
  Weight: 60 kg

DRUGS (3)
  1. RINVOQ [Suspect]
     Active Substance: UPADACITINIB
     Indication: Rheumatoid arthritis
     Route: 048
     Dates: start: 202110
  2. RINVOQ [Suspect]
     Active Substance: UPADACITINIB
     Route: 048
  3. HUMIRA [Suspect]
     Active Substance: ADALIMUMAB
     Indication: Product used for unknown indication
     Route: 058

REACTIONS (16)
  - Pituitary tumour [Not Recovered/Not Resolved]
  - Ligament sprain [Recovering/Resolving]
  - Ligament rupture [Recovering/Resolving]
  - Tendon rupture [Recovering/Resolving]
  - Blood prolactin increased [Not Recovered/Not Resolved]
  - Fibromyalgia [Recovering/Resolving]
  - Stress [Recovering/Resolving]
  - Swelling [Recovering/Resolving]
  - Emotional distress [Unknown]
  - Type 2 diabetes mellitus [Recovering/Resolving]
  - Pain in extremity [Recovering/Resolving]
  - Spinal pain [Recovering/Resolving]
  - Drug ineffective [Unknown]
  - Pain [Unknown]
  - Arthralgia [Recovering/Resolving]
  - Headache [Not Recovered/Not Resolved]

NARRATIVE: CASE EVENT DATE: 20210101
